FAERS Safety Report 10399565 (Version 1)
Quarter: 2014Q3

REPORT INFORMATION
  Report Type: Spontaneous
  Country: US (occurrence: None)
  Receive Date: 20140818
  Receipt Date: 20140818
  Transmission Date: 20150326
  Serious: No
  Sender: FDA-Public Use
  Company Number: None

PATIENT
  Age: 65 Year
  Sex: Female
  Weight: 70.31 kg

DRUGS (1)
  1. NITROFURANTOIN MONO-MCR 100MG MYLAN [Suspect]
     Active Substance: NITROFURANTOIN\NITROFURANTOIN MONOHYDRATE
     Indication: URINARY TRACT INFECTION
     Dosage: 2 XS A DAY  TWICE DAILY TAKEN BY MOUTH
     Route: 048
     Dates: start: 20140610, end: 20140620

REACTIONS (4)
  - Muscle spasms [None]
  - Abdominal discomfort [None]
  - Malaise [None]
  - Headache [None]

NARRATIVE: CASE EVENT DATE: 20140610
